FAERS Safety Report 7446182-9 (Version None)
Quarter: 2011Q2

REPORT INFORMATION
  Report Type: 
  Country: None (occurrence: None)
  Receive Date: 20110429
  Receipt Date: 20110421
  Transmission Date: 20111010
  Serious: Yes (Other)
  Sender: FDA-Public Use
  Company Number: CH-US-EMD SERONO, INC.-7055819

PATIENT
  Sex: Male
  Weight: 94 kg

DRUGS (2)
  1. DAFALGAN [Concomitant]
     Indication: HEADACHE
     Route: 048
     Dates: start: 20090401
  2. REBIF [Suspect]
     Indication: MULTIPLE SCLEROSIS
     Route: 058
     Dates: start: 20090401

REACTIONS (3)
  - OBSESSIVE-COMPULSIVE DISORDER [None]
  - DEPRESSED MOOD [None]
  - ANXIETY [None]
